FAERS Safety Report 8825281 (Version 1)
Quarter: 2012Q4

REPORT INFORMATION
  Report Type: 
  Country: GB (occurrence: GB)
  Receive Date: 20121004
  Receipt Date: 20121004
  Transmission Date: 20130627
  Serious: Yes (Disabling, Other)
  Sender: FDA-Public Use
  Company Number: GB-WATSON-2012-16638

PATIENT
  Age: 69 Year
  Sex: Female

DRUGS (9)
  1. ROPINIROLE HYDROCHLORIDE [Suspect]
     Indication: RESTLESS LEGS SYNDROME
     Dosage: 250 mcg increasing to 1mg over 2 weeks
     Route: 048
     Dates: start: 20120823, end: 20120907
  2. SIMVASTATIN [Concomitant]
     Indication: PRODUCT USED FOR UNKNOWN INDICATION
     Dosage: 20 mg, daily (at night)
     Route: 065
     Dates: start: 20120903
  3. RAMIPRIL [Concomitant]
     Indication: PRODUCT USED FOR UNKNOWN INDICATION
     Dosage: 2.5 mg, daily
     Route: 065
     Dates: start: 20120903
  4. ETORICOXIB [Concomitant]
     Indication: PRODUCT USED FOR UNKNOWN INDICATION
     Dosage: 90 mg, daily
     Route: 065
     Dates: start: 20120903
  5. PARACETAMOL [Concomitant]
     Indication: PAIN
     Dosage: 1 g, qid
     Route: 065
     Dates: start: 20120903
  6. FUROSEMIDE [Concomitant]
     Indication: PRODUCT USED FOR UNKNOWN INDICATION
     Dosage: 40 mg, daily (each morning)
     Route: 065
     Dates: start: 20120903
  7. SALBUTAMOL [Concomitant]
     Indication: PRODUCT USED FOR UNKNOWN INDICATION
     Dosage: 200 mcg, as necessary
     Route: 055
     Dates: start: 20120903
  8. AZATHIOPRINE [Concomitant]
     Indication: PRODUCT USED FOR UNKNOWN INDICATION
     Dosage: 50 mg, bid
     Route: 048
     Dates: start: 20120903
  9. ACETYLCYSTEINE [Concomitant]
     Indication: PRODUCT USED FOR UNKNOWN INDICATION
     Dosage: 600 mg, bid
     Route: 065
     Dates: start: 20120903

REACTIONS (2)
  - Pruritus generalised [Not Recovered/Not Resolved]
  - Insomnia [Unknown]
